FAERS Safety Report 9659941 (Version 1)
Quarter: 2013Q4

REPORT INFORMATION
  Report Type: Spontaneous
  Country: US (occurrence: US)
  Receive Date: 20131031
  Receipt Date: 20131031
  Transmission Date: 20140711
  Serious: No
  Sender: FDA-Public Use
  Company Number: US-PFIZER INC-2013308752

PATIENT
  Age: 26 Year
  Sex: Female

DRUGS (1)
  1. EFFEXOR XR [Suspect]
     Dosage: 37.5 MG, UNK

REACTIONS (5)
  - Yawning [Recovered/Resolved]
  - Nausea [Recovered/Resolved]
  - Bruxism [Unknown]
  - Pain [Unknown]
  - Ear discomfort [Unknown]
